FAERS Safety Report 9250795 (Version 2)
Quarter: 2014Q1

REPORT INFORMATION
  Report Type: Spontaneous
  Country: US (occurrence: None)
  Receive Date: 20130305
  Receipt Date: 20140306
  Transmission Date: 20141002
  Serious: Yes (Hospitalization, Other)
  Sender: FDA-Public Use
  Company Number: 163-21880-12090323

PATIENT
  Age: 62 Year
  Sex: Female

DRUGS (5)
  1. REVLIMID [Suspect]
     Indication: PLASMA CELL MYELOMA
     Dosage: TEMPORARILY INTERRUPTED
     Route: 048
     Dates: start: 20120425
  2. FUROSEMIDE (FUROSEMIDE) [Concomitant]
  3. METOPROLOL (METOPROLOL) [Concomitant]
  4. OMEPRAZOLE (OMEPRAZOLE) [Concomitant]
  5. ACYCLOVIR (ACICLOVIR) [Concomitant]

REACTIONS (3)
  - Thrombosis [None]
  - Muscle spasms [None]
  - Thrombosis [None]
